FAERS Safety Report 4964889-X (Version None)
Quarter: 2006Q1

REPORT INFORMATION
  Report Type: 
  Country: None (occurrence: None)
  Receive Date: 20060207
  Receipt Date: 20050301
  Transmission Date: 20060701
  Serious: Yes (Hospitalization)
  Sender: FDA-Public Use
  Company Number: 241403

PATIENT
  Age: 14 Year
  Sex: Female
  Weight: 72.1 kg

DRUGS (3)
  1. NOVOLOG [Suspect]
     Indication: DIABETES MELLITUS INSULIN-DEPENDENT
     Dosage: 28.8 IU, QD + SLIDING SCALE, SUBCUTAN.-PUMP
     Route: 058
     Dates: start: 20010101
  2. METFORMIN [Concomitant]
  3. PREVACID [Concomitant]

REACTIONS (1)
  - BLOOD GLUCOSE INCREASED [None]
